FAERS Safety Report 6386752-2 (Version None)
Quarter: 2009Q4

REPORT INFORMATION
  Report Type: 
  Country: None (occurrence: None)
  Receive Date: 20091002
  Receipt Date: 20090929
  Transmission Date: 20100525
  Serious: Yes (Hospitalization)
  Sender: FDA-Public Use
  Company Number: A0809092A

PATIENT
  Age: 66 Year
  Sex: Female
  Weight: 105 kg

DRUGS (8)
  1. AVANDIA [Suspect]
     Dosage: 4MG PER DAY
     Route: 048
     Dates: start: 20020501, end: 20070501
  2. AVANDAMET [Suspect]
     Route: 048
  3. GLIMEPIRIDE [Concomitant]
  4. PLAVIX [Concomitant]
  5. ZOCOR [Concomitant]
  6. FELODIPINE [Concomitant]
  7. HYZAAR [Concomitant]
  8. ASPIRIN [Concomitant]

REACTIONS (1)
  - CEREBROVASCULAR ACCIDENT [None]
